FAERS Safety Report 6882094-7 (Version None)
Quarter: 2010Q3

REPORT INFORMATION
  Report Type: 
  Country: None (occurrence: None)
  Receive Date: 20100728
  Receipt Date: 20100728
  Transmission Date: 20110219
  Serious: No
  Sender: FDA-Public Use
  Company Number: None

PATIENT
  Sex: Female
  Weight: 52.1 kg

DRUGS (3)
  1. CYTARABINE [Suspect]
     Dosage: 1085 MG
     Dates: end: 20100607
  2. DAUNORUBICIN HCL [Suspect]
     Dosage: 418.5 MG
     Dates: end: 20100603
  3. ETOPOSIDE [Suspect]
     Dosage: 465 MG
     Dates: end: 20100603

REACTIONS (1)
  - CAECITIS [None]
